FAERS Safety Report 4273509-1 (Version None)
Quarter: 2004Q1

REPORT INFORMATION
  Report Type: 
  Country: None (occurrence: None)
  Receive Date: 20040119
  Receipt Date: 20040109
  Transmission Date: 20041129
  Serious: Yes (Other)
  Sender: FDA-Public Use
  Company Number: GB-GLAXOSMITHKLINE-B0319794A

PATIENT

DRUGS (1)
  1. NARAMIG [Suspect]

REACTIONS (1)
  - HEPATITIS [None]
